FAERS Safety Report 17543745 (Version 1)
Quarter: 2020Q1

REPORT INFORMATION
  Report Type: Spontaneous
  Country: DE (occurrence: DE)
  Receive Date: 20200316
  Receipt Date: 20200316
  Transmission Date: 20200409
  Serious: Yes (Hospitalization)
  Sender: FDA-Public Use
  Company Number: DE-TEVA-2020-DE-1202321

PATIENT
  Age: 79 Year
  Sex: Male

DRUGS (6)
  1. PIRENZEPIN [Suspect]
     Active Substance: PIRENZEPINE
     Dosage: 50 MILLIGRAM DAILY; 50 MG, 1-0-0-0, TABLET
     Route: 065
  2. MOVICOL BEUTEL [Concomitant]
     Active Substance: POLYETHYLENE GLYCOL 3350\POTASSIUM CHLORIDE\SODIUM BICARBONATE\SODIUM CHLORIDE
     Dosage: 1 DOSAGE FORMS DAILY; NK MG, 1-0-0-0
  3. HYDROCHLOROTHIAZID/VALSARTAN [Concomitant]
     Active Substance: HYDROCHLOROTHIAZIDE\VALSARTAN
     Dosage: 1 DOSAGE FORMS DAILY; 12.5|160 MG, 1-0-0-0, TABLET
  4. PREGABALIN. [Suspect]
     Active Substance: PREGABALIN
     Dosage: 150 MILLIGRAM DAILY; 75 MG, 1-0-1-0, CAPSULE
     Route: 065
  5. TAMSULOSIN [Suspect]
     Active Substance: TAMSULOSIN
     Dosage: .4 MILLIGRAM DAILY; 0.4 MG, 1-0-0-0, RETARD CAPSULES
     Route: 065
  6. SIMVASTATIN. [Concomitant]
     Active Substance: SIMVASTATIN
     Dosage: 20 MILLIGRAM DAILY; 20 MG, 0-0-1-0, TABLET
     Route: 065

REACTIONS (4)
  - Cough [Unknown]
  - Constipation [Unknown]
  - Abdominal pain lower [Unknown]
  - Abdominal pain [Unknown]
